FAERS Safety Report 23070505 (Version 5)
Quarter: 2023Q4

REPORT INFORMATION
  Report Type: Report from Study
  Country: US (occurrence: US)
  Receive Date: 20231016
  Receipt Date: 20231130
  Transmission Date: 20240110
  Serious: Yes (Other)
  Sender: FDA-Public Use
  Company Number: US-ORGANON-O2310USA001425

PATIENT
  Age: 25 Year
  Sex: Female
  Weight: 138.78 kg

DRUGS (2)
  1. IMPLANON [Suspect]
     Active Substance: ETONOGESTREL
     Indication: Contraception
     Dosage: 1 IMPLANT IN RIGHT ARM (DOSE/FREQUENCY WAS 68 MILLIGRAM)
     Route: 059
     Dates: start: 20230828, end: 20230909
  2. NEXPLANON [Suspect]
     Active Substance: ETONOGESTREL
     Indication: Contraception
     Dosage: 1 IMPLANT IN LEFT ARM
     Route: 059
     Dates: start: 20230909

REACTIONS (5)
  - Device expulsion [Recovered/Resolved]
  - Device placement issue [Not Recovered/Not Resolved]
  - Wrong technique in product usage process [Unknown]
  - Complication associated with device [Not Recovered/Not Resolved]
  - No adverse event [Unknown]

NARRATIVE: CASE EVENT DATE: 20230830
